FAERS Safety Report 26128701 (Version 3)
Quarter: 2025Q4

REPORT INFORMATION
  Report Type: Report from Study
  Country: BR (occurrence: BR)
  Receive Date: 20251208
  Receipt Date: 20251231
  Transmission Date: 20260117
  Serious: Yes (Other)
  Sender: JOHNSON AND JOHNSON
  Company Number: BR-JNJFOC-20251208547

PATIENT
  Age: 60 Year
  Sex: Female
  Weight: 94 kg

DRUGS (8)
  1. GOLIMUMAB [Suspect]
     Active Substance: GOLIMUMAB
     Indication: Psoriatic arthropathy
     Route: 058
     Dates: start: 20250915, end: 20251013
  2. GOLIMUMAB [Suspect]
     Active Substance: GOLIMUMAB
  3. GOLIMUMAB [Suspect]
     Active Substance: GOLIMUMAB
  4. SIMPONI [Suspect]
     Active Substance: GOLIMUMAB
     Indication: Psoriatic arthropathy
     Route: 058
     Dates: start: 20250915, end: 20251013
  5. SIMPONI [Suspect]
     Active Substance: GOLIMUMAB
  6. LOSARTAN [Concomitant]
     Active Substance: LOSARTAN
     Indication: Product used for unknown indication
  7. SPIRONOLACTONE [Concomitant]
     Active Substance: SPIRONOLACTONE
     Indication: Product used for unknown indication
  8. FOLIC ACID [Concomitant]
     Active Substance: FOLIC ACID
     Indication: Product used for unknown indication

REACTIONS (7)
  - Erysipelas [Not Recovered/Not Resolved]
  - Inappropriate schedule of product administration [Unknown]
  - Hepatomegaly [Unknown]
  - Hypersensitivity [Unknown]
  - Injection site reaction [Unknown]
  - Hypertension [Unknown]
  - Haematoma [Unknown]

NARRATIVE: CASE EVENT DATE: 20250101
